FAERS Safety Report 16787395 (Version 1)
Quarter: 2019Q3

REPORT INFORMATION
  Report Type: Report from Study
  Country: US (occurrence: US)
  Receive Date: 20190909
  Receipt Date: 20190909
  Transmission Date: 20191005
  Serious: Yes (Hospitalization)
  Sender: FDA-Public Use
  Company Number: US-ACTELION-A-NJ2019-195170

PATIENT
  Sex: Female
  Weight: 51.7 kg

DRUGS (1)
  1. OPSUMIT [Suspect]
     Active Substance: MACITENTAN
     Indication: PULMONARY ARTERIAL HYPERTENSION
     Dosage: 10 MG, QD
     Route: 048

REACTIONS (6)
  - Oxygen saturation decreased [Unknown]
  - Feeling abnormal [Unknown]
  - Somnolence [Unknown]
  - Confusional state [Unknown]
  - Motor dysfunction [Unknown]
  - Mental status changes [Unknown]
